FAERS Safety Report 9284587 (Version 2)
Quarter: 2013Q2

REPORT INFORMATION
  Report Type: Report from Study
  Country: TW (occurrence: TW)
  Receive Date: 20130512
  Receipt Date: 20130516
  Transmission Date: 20140414
  Serious: Yes (Other)
  Sender: FDA-Public Use
  Company Number: PHHY2013TW042183

PATIENT
  Age: 30 Year
  Sex: Male

DRUGS (21)
  1. AMN107 [Suspect]
     Indication: CHRONIC MYELOID LEUKAEMIA
     Dosage: 800 MG, DAILY
     Route: 048
     Dates: start: 20110713, end: 20121120
  2. GLUCOPHAGE [Concomitant]
     Indication: TYPE 2 DIABETES MELLITUS
  3. NOVOMIX [Concomitant]
     Indication: TYPE 2 DIABETES MELLITUS
  4. DEFENSE [Concomitant]
     Indication: PROPHYLAXIS
     Dates: start: 20121113
  5. NOVAMIN [Concomitant]
     Indication: VOMITING
     Dates: start: 20121117, end: 20121117
  6. NORGESIC                           /00040301/ [Concomitant]
     Indication: HEADACHE
     Dates: start: 20121117, end: 20121120
  7. NORGESIC                           /00040301/ [Concomitant]
     Dates: start: 20121222, end: 20121225
  8. SINPHADOL [Concomitant]
     Indication: DIZZINESS
     Dates: start: 20121205, end: 20121219
  9. SINPHADOL [Concomitant]
     Dates: start: 20130108
  10. SUZIN//DIPYRIDAMOLE [Concomitant]
     Indication: DIZZINESS
     Dates: start: 20121205, end: 20121219
  11. SUZIN//DIPYRIDAMOLE [Concomitant]
     Dates: start: 20130108
  12. TRAMAL [Concomitant]
     Indication: HEADACHE
     Dates: start: 20121222, end: 20121222
  13. KENTAMIN [Concomitant]
     Indication: DEAFNESS UNILATERAL
     Dates: start: 20121224, end: 20121227
  14. KENTAMIN [Concomitant]
     Dates: start: 20130123, end: 20130126
  15. RINDERON [Concomitant]
     Indication: DEAFNESS UNILATERAL
     Dates: start: 20121224, end: 20121224
  16. SIBELIUM [Concomitant]
     Indication: DEAFNESS UNILATERAL
     Dates: start: 20121224, end: 20121227
  17. SIBELIUM [Concomitant]
     Dates: start: 20130123, end: 20130126
  18. PREDNISOLONE [Concomitant]
     Indication: DIZZINESS
     Dates: start: 20130123, end: 20130206
  19. WELLPION [Concomitant]
     Indication: PROPHYLAXIS
     Dates: start: 20130123, end: 20130206
  20. PARACETAMOL [Concomitant]
     Indication: HEADACHE
     Dates: start: 20121117, end: 20121117
  21. PARACETAMOL [Concomitant]
     Dates: start: 20121222, end: 20121222

REACTIONS (4)
  - Epilepsy [Recovered/Resolved with Sequelae]
  - Rhinorrhoea [Recovered/Resolved with Sequelae]
  - Cough [Recovered/Resolved with Sequelae]
  - Diarrhoea [Recovered/Resolved with Sequelae]
